FAERS Safety Report 8055696-2 (Version None)
Quarter: 2011Q4

REPORT INFORMATION
  Report Type: 
  Country: None (occurrence: None)
  Receive Date: 20111219
  Receipt Date: 20110311
  Transmission Date: 20120403
  Serious: Yes (Hospitalization, Other)
  Sender: FDA-Public Use
  Company Number: WAES 1103USA01734

PATIENT
  Age: 44 Year
  Sex: Female
  Weight: 92.5338 kg

DRUGS (1)
  1. JANUVIA [Suspect]
     Indication: TYPE 2 DIABETES MELLITUS
     Dosage: /PO
     Route: 048
     Dates: start: 20080208, end: 20100131

REACTIONS (2)
  - ABDOMINAL PAIN [None]
  - PANCREATITIS [None]
